FAERS Safety Report 8231177-8 (Version None)
Quarter: 2012Q1

REPORT INFORMATION
  Report Type: 
  Country: None (occurrence: None)
  Receive Date: 20120323
  Receipt Date: 20120314
  Transmission Date: 20120608
  Serious: Yes (Other)
  Sender: FDA-Public Use
  Company Number: US-JNJFOC-20120307487

PATIENT
  Sex: Male
  Weight: 65.32 kg

DRUGS (6)
  1. XANAX XR [Concomitant]
     Indication: ANXIETY
     Route: 048
  2. ALTACE [Concomitant]
     Indication: HYPERTENSION
     Route: 048
     Dates: start: 19980101
  3. NIASPAN [Concomitant]
     Indication: BLOOD CHOLESTEROL
     Dates: start: 20111201
  4. REMISOL PLUS [Concomitant]
     Indication: ATRIAL FIBRILLATION
  5. FISH OIL [Concomitant]
     Indication: GENERAL PHYSICAL CONDITION
     Route: 048
  6. XARELTO [Suspect]
     Indication: ATRIAL FIBRILLATION
     Route: 048
     Dates: start: 20120313

REACTIONS (2)
  - ARRHYTHMIA [None]
  - VOMITING [None]
